FAERS Safety Report 16268862 (Version 1)
Quarter: 2019Q2

REPORT INFORMATION
  Report Type: Spontaneous
  Country: US (occurrence: US)
  Receive Date: 20190503
  Receipt Date: 20190503
  Transmission Date: 20190711
  Serious: No
  Sender: FDA-Public Use
  Company Number: US-ZYDUS-032657

PATIENT
  Age: 34 Year
  Sex: Male

DRUGS (2)
  1. LACTOBACILLUS REUTERI [Concomitant]
     Active Substance: LACTOBACILLUS REUTERI
     Indication: PROBIOTIC THERAPY
     Route: 065
  2. PAROXETINE. [Suspect]
     Active Substance: PAROXETINE
     Indication: DEPRESSION
     Route: 048
     Dates: start: 201808

REACTIONS (1)
  - Somnolence [Not Recovered/Not Resolved]

NARRATIVE: CASE EVENT DATE: 2018
